FAERS Safety Report 9109429 (Version 2)
Quarter: 2013Q2

REPORT INFORMATION
  Report Type: Spontaneous
  Country: US (occurrence: US)
  Receive Date: 20130222
  Receipt Date: 20130425
  Transmission Date: 20140414
  Serious: Yes (Life-Threatening, Hospitalization, Other)
  Sender: FDA-Public Use
  Company Number: PHHY2013US017476

PATIENT
  Age: 47 Year
  Sex: Male

DRUGS (5)
  1. AZITHROMYCIN [Suspect]
     Indication: UPPER RESPIRATORY TRACT INFECTION
  2. METHADONE [Interacting]
     Dosage: 10 MG, TID
  3. LISINOPRIL AND HYDROCHLOROTHIAZIDE [Concomitant]
     Dosage: 1 DF, QD
  4. BENZONATATE [Concomitant]
     Dosage: 10 MG, TID
  5. PARACETAMOL W/DEXTROMETHORPHAN/DOXYLAMINE [Concomitant]

REACTIONS (8)
  - Cardiac arrest [Unknown]
  - Electrocardiogram QT prolonged [Unknown]
  - Loss of consciousness [Unknown]
  - Cyanosis [Unknown]
  - Palpitations [Unknown]
  - Pulse absent [Unknown]
  - Drug interaction [Unknown]
  - Nausea [Unknown]
